FAERS Safety Report 15250891 (Version 1)
Quarter: 2018Q3

REPORT INFORMATION
  Report Type: Spontaneous
  Country: US (occurrence: US)
  Receive Date: 20180807
  Receipt Date: 20180807
  Transmission Date: 20181010
  Serious: No
  Sender: FDA-Public Use
  Company Number: US-PERRIGO-17US027173

PATIENT
  Sex: Female

DRUGS (1)
  1. MOTRIN IB [Suspect]
     Active Substance: IBUPROFEN
     Indication: HEADACHE
     Dosage: UNKNOWN, UNKNOWN
     Route: 048
     Dates: start: 201709, end: 201709

REACTIONS (2)
  - Vomiting [Unknown]
  - Diarrhoea [Unknown]

NARRATIVE: CASE EVENT DATE: 201709
